FAERS Safety Report 8895799 (Version 7)
Quarter: 2018Q1

REPORT INFORMATION
  Report Type: Report from Study
  Country: BR (occurrence: BR)
  Receive Date: 20121108
  Receipt Date: 20180216
  Transmission Date: 20180509
  Serious: Yes (Life-Threatening, Hospitalization, Other)
  Sender: FDA-Public Use
  Company Number: BR-ROCHE-1152438

PATIENT
  Sex: Female
  Weight: 65 kg

DRUGS (5)
  1. XOLAIR [Suspect]
     Active Substance: OMALIZUMAB
     Indication: ASTHMA
     Dosage: 2 DF (300 MG), QMO (SINCE 12 YEARS AGO)
     Route: 058
     Dates: start: 2006
  2. XOLAIR [Suspect]
     Active Substance: OMALIZUMAB
     Indication: RESPIRATORY DISORDER
  3. BUDESONIDE. [Concomitant]
     Active Substance: BUDESONIDE
     Indication: RESPIRATORY DISORDER
     Dosage: UNK UNK, QID
     Route: 055
  4. XOLAIR [Suspect]
     Active Substance: OMALIZUMAB
     Indication: BLOOD IMMUNOGLOBULIN E INCREASED
     Dosage: UNK
     Route: 058
     Dates: start: 20120917
  5. MONTELAIR [Concomitant]
     Active Substance: MONTELUKAST SODIUM
     Indication: ASTHMA
     Dosage: STARTED 4 YEARS AGO
     Route: 048

REACTIONS (31)
  - Intervertebral disc protrusion [Recovering/Resolving]
  - Seborrhoea [Not Recovered/Not Resolved]
  - Cough [Not Recovered/Not Resolved]
  - Malaise [Not Recovered/Not Resolved]
  - Hypersensitivity [Not Recovered/Not Resolved]
  - Increased bronchial secretion [Not Recovered/Not Resolved]
  - Allergy to animal [Unknown]
  - Headache [Not Recovered/Not Resolved]
  - Drug ineffective [Unknown]
  - Weight increased [Not Recovered/Not Resolved]
  - Bacterial allergy [Recovering/Resolving]
  - Nausea [Not Recovered/Not Resolved]
  - Pruritus [Unknown]
  - Respiratory disorder [Unknown]
  - Asthenia [Unknown]
  - Depressed mood [Unknown]
  - Dysphonia [Not Recovered/Not Resolved]
  - Wheezing [Not Recovered/Not Resolved]
  - Blood immunoglobulin E increased [Recovering/Resolving]
  - Condition aggravated [Unknown]
  - Secretion discharge [Unknown]
  - Nasal disorder [Unknown]
  - Sensitisation [Unknown]
  - Fatigue [Not Recovered/Not Resolved]
  - Coma [Unknown]
  - Food allergy [Recovered/Resolved]
  - Anaphylactic shock [Unknown]
  - Asthmatic crisis [Recovered/Resolved]
  - Nasal polyps [Unknown]
  - Overweight [Unknown]
  - Product use in unapproved indication [Unknown]
